FAERS Safety Report 15372747 (Version 5)
Quarter: 2018Q4

REPORT INFORMATION
  Report Type: Spontaneous
  Country: US (occurrence: US)
  Receive Date: 20180912
  Receipt Date: 20181125
  Transmission Date: 20190204
  Serious: Yes (Death)
  Sender: FDA-Public Use
  Company Number: US-BIOGEN-2018BI00630608

PATIENT
  Sex: Female

DRUGS (3)
  1. AMPYRA [Concomitant]
     Active Substance: DALFAMPRIDINE
     Indication: MULTIPLE SCLEROSIS
     Route: 048
     Dates: start: 2010, end: 201802
  2. TECFIDERA [Suspect]
     Active Substance: DIMETHYL FUMARATE
     Indication: MULTIPLE SCLEROSIS
     Dosage: MAINTENANCE DOSE
     Route: 048
     Dates: end: 2018
  3. TECFIDERA [Suspect]
     Active Substance: DIMETHYL FUMARATE
     Dosage: MAINTENANCE DOSE
     Route: 048
     Dates: end: 2018

REACTIONS (4)
  - Arrhythmia [Fatal]
  - Fluid retention [Fatal]
  - Multiple sclerosis [Fatal]
  - Headache [Unknown]

NARRATIVE: CASE EVENT DATE: 2017
